FAERS Safety Report 7752155-9 (Version None)
Quarter: 2011Q3

REPORT INFORMATION
  Report Type: 
  Country: None (occurrence: None)
  Receive Date: 20110915
  Receipt Date: 20110912
  Transmission Date: 20111222
  Serious: No
  Sender: FDA-Public Use
  Company Number: US-PFIZER INC-2011214942

PATIENT
  Sex: Female

DRUGS (2)
  1. ADVIL PM [Suspect]
     Dosage: UNK
     Route: 065
     Dates: start: 20110911
  2. DIPHENHYDRAMINE HCL [Suspect]
     Dosage: UNK
     Route: 065
     Dates: start: 20110911

REACTIONS (4)
  - FATIGUE [None]
  - NAUSEA [None]
  - EYE MOVEMENT DISORDER [None]
  - EYE DISORDER [None]
